FAERS Safety Report 5484501-3 (Version None)
Quarter: 2007Q4

REPORT INFORMATION
  Report Type: 
  Country: None (occurrence: None)
  Receive Date: 20071010
  Receipt Date: 20070926
  Transmission Date: 20080405
  Serious: Yes (Other)
  Sender: FDA-Public Use
  Company Number: 018932

PATIENT
  Age: 12 Year
  Sex: Female
  Weight: 49.9 kg

DRUGS (1)
  1. ADDERALL 10 [Suspect]
     Indication: ATTENTION DEFICIT/HYPERACTIVITY DISORDER
     Dosage: QD, ORAL
     Route: 048
     Dates: start: 20050101

REACTIONS (2)
  - GINGIVAL HYPERPLASIA [None]
  - GINGIVECTOMY [None]
